FAERS Safety Report 15212084 (Version 1)
Quarter: 2018Q3

REPORT INFORMATION
  Report Type: Report from Study
  Country: FR (occurrence: FR)
  Receive Date: 20180730
  Receipt Date: 20180730
  Transmission Date: 20181010
  Serious: Yes (Other)
  Sender: FDA-Public Use
  Company Number: FR-TEVA-2018-FR-932010

PATIENT
  Age: 38 Year
  Sex: Female
  Weight: 54 kg

DRUGS (7)
  1. DAIVOBET [Concomitant]
     Active Substance: BETAMETHASONE DIPROPIONATE\CALCIPOTRIENE
     Dosage: UNK
     Route: 065
     Dates: start: 20150522
  2. ENBREL [Suspect]
     Active Substance: ETANERCEPT
     Indication: PSORIASIS
     Dosage: 50 MG, WEEKLY
     Route: 058
     Dates: start: 20130711, end: 20131015
  3. METHOTREXATE SODIUM. [Suspect]
     Active Substance: METHOTREXATE SODIUM
     Dosage: UNK
     Route: 065
  4. APREMILAST [Concomitant]
     Active Substance: APREMILAST
     Dosage: 20 MILLIGRAM DAILY; 10 MG, 2X/DAY
     Route: 048
     Dates: start: 20170202, end: 20170725
  5. DIPROSONE /00008502/ [Concomitant]
     Active Substance: BETAMETHASONE SODIUM PHOSPHATE
     Dosage: UNK
     Route: 065
     Dates: start: 20150522
  6. CLOBEX /00012002/ [Concomitant]
     Active Substance: CLOXACILLIN SODIUM
     Dosage: UNK
     Route: 065
     Dates: start: 20150522
  7. COSENTYX [Concomitant]
     Active Substance: SECUKINUMAB
     Dosage: UNK
     Route: 065
     Dates: start: 20160620, end: 20170620

REACTIONS (8)
  - Anogenital warts [Recovered/Resolved]
  - Headache [Not Recovered/Not Resolved]
  - Drug intolerance [Not Recovered/Not Resolved]
  - Malignant melanoma [Recovered/Resolved]
  - Psoriasis [Recovered/Resolved]
  - Abdominal pain upper [Not Recovered/Not Resolved]
  - Nausea [Not Recovered/Not Resolved]
  - Fatigue [Not Recovered/Not Resolved]

NARRATIVE: CASE EVENT DATE: 20130926
